FAERS Safety Report 12136042 (Version 1)
Quarter: 2016Q1

REPORT INFORMATION
  Report Type: Spontaneous
  Country: FR (occurrence: FR)
  Receive Date: 20160302
  Receipt Date: 20160302
  Transmission Date: 20160526
  Serious: Yes (Death, Hospitalization, Other)
  Sender: FDA-Public Use
  Company Number: FR-ACCORD-038430

PATIENT
  Age: 61 Year
  Sex: Male

DRUGS (5)
  1. ZARZIO [Suspect]
     Active Substance: FILGRASTIM
     Indication: PRODUCT USED FOR UNKNOWN INDICATION
     Dosage: SINGLE ADMINISTRATION
     Route: 058
     Dates: start: 20151109, end: 20151109
  2. FLUOROURACIL ACCORD [Suspect]
     Active Substance: FLUOROURACIL
     Indication: PRODUCT USED FOR UNKNOWN INDICATION
     Route: 042
     Dates: start: 20151103, end: 20151107
  3. CARBOPLATIN ACCORD [Suspect]
     Active Substance: CARBOPLATIN
     Indication: PRODUCT USED FOR UNKNOWN INDICATION
     Dosage: SINGLE ADMINISTRATION
     Route: 042
     Dates: start: 20151103, end: 20151103
  4. DOCETAXEL HOSPIRA [Suspect]
     Active Substance: DOCETAXEL
     Indication: PRODUCT USED FOR UNKNOWN INDICATION
     Dosage: SINGLE ADMINISTRATION
     Route: 042
     Dates: start: 20151103, end: 20151103
  5. BISOPROLOL [Concomitant]
     Active Substance: BISOPROLOL
     Route: 048

REACTIONS (11)
  - Acute kidney injury [Unknown]
  - Pneumonia [Unknown]
  - Aplasia [Unknown]
  - Escherichia infection [Unknown]
  - Septic shock [Fatal]
  - Pancytopenia [Fatal]
  - Multiple organ dysfunction syndrome [Unknown]
  - Gastrointestinal ischaemia [Fatal]
  - Rectal haemorrhage [Unknown]
  - Pneumobilia [Unknown]
  - Pseudomonas infection [Unknown]

NARRATIVE: CASE EVENT DATE: 20151109
